FAERS Safety Report 6746264-0 (Version None)
Quarter: 2010Q2

REPORT INFORMATION
  Report Type: 
  Country: None (occurrence: None)
  Receive Date: 20100528
  Receipt Date: 20100315
  Transmission Date: 20101027
  Serious: No
  Sender: FDA-Public Use
  Company Number: US-ASTRAZENECA-2010SE11294

PATIENT
  Age: 53 Year
  Sex: Male
  Weight: 104.3 kg

DRUGS (23)
  1. OMEPRAZOLE [Suspect]
     Indication: OEDEMA PERIPHERAL
     Route: 048
     Dates: start: 20040701
  2. ALLOPURINOL [Suspect]
     Indication: HEPATIC ENZYME INCREASED
     Dosage: 300 MG, 0.5-1 A DAY
     Route: 048
     Dates: start: 20040201
  3. COLCHICINE [Suspect]
     Indication: ALANINE AMINOTRANSFERASE INCREASED
     Dosage: 0.6 MG, 1-2 TABS PER DAY
     Route: 048
     Dates: start: 20020301
  4. FINASTERIDE [Suspect]
     Indication: OEDEMA
     Route: 048
     Dates: start: 20080801
  5. FLUNISOLIDE [Suspect]
     Indication: OEDEMA PERIPHERAL
     Route: 065
     Dates: start: 20031201, end: 20061101
  6. GLIPIZIDE [Suspect]
     Indication: DIABETES MELLITUS
     Dosage: 10 MCI, 2 IN 1 D
     Route: 048
  7. LORATADINE [Suspect]
     Route: 048
     Dates: start: 20081101
  8. GLUCOPHAGE [Suspect]
     Indication: DIABETES MELLITUS
     Dosage: 1 TAB, 4 IN 1 D
     Route: 048
     Dates: start: 20090201
  9. GLUCOPHAGE [Suspect]
     Route: 048
     Dates: start: 20090101
  10. GLUCOPHAGE [Suspect]
     Dosage: 500 MG, 4 TABLETS DAILY
     Route: 048
     Dates: start: 20090101
  11. OXYCODONE [Suspect]
     Dosage: 5 MG, 4-6 AS NEEDED AT BETTIME
     Route: 065
     Dates: start: 20090201
  12. ACTOS [Suspect]
     Indication: DIABETES MELLITUS
     Dosage: 1/2 TAB, 15 MG QD
     Route: 048
     Dates: start: 20090108, end: 20090101
  13. ACTOS [Suspect]
     Route: 048
  14. ACTOS [Suspect]
     Route: 048
  15. PENTOXIFYLLINE [Suspect]
     Indication: OEDEMA
     Route: 048
     Dates: start: 20020501
  16. PENTOXIFYLLINE [Suspect]
     Indication: INFLUENZA
     Route: 048
     Dates: start: 20020501
  17. PENTOXIFYLLINE [Suspect]
     Indication: HEPATIC ENZYME INCREASED
     Route: 048
     Dates: start: 20020501
  18. RANITIDINE [Suspect]
     Indication: MYALGIA
     Route: 048
     Dates: start: 20030901
  19. SIMVASTATIN [Suspect]
     Indication: BLOOD CHOLESTEROL INCREASED
     Route: 048
  20. ALBUTEROL SULFATE [Suspect]
     Indication: RESPIRATORY TRACT INFECTION VIRAL
     Route: 048
     Dates: start: 20070301
  21. ALBUTEROL SULFATE [Suspect]
     Indication: RHINITIS
     Route: 048
     Dates: start: 20070301
  22. ALBUTEROL SULFATE [Suspect]
     Indication: COUGH
     Route: 048
     Dates: start: 20070301
  23. LASIX [Concomitant]
     Indication: FLUID RETENTION

REACTIONS (6)
  - ALANINE AMINOTRANSFERASE INCREASED [None]
  - DRUG INEFFECTIVE [None]
  - GINGIVAL DISORDER [None]
  - MUSCLE SPASMS [None]
  - NASOPHARYNGITIS [None]
  - OEDEMA PERIPHERAL [None]
